FAERS Safety Report 4625178-6 (Version None)
Quarter: 2005Q2

REPORT INFORMATION
  Report Type: 
  Country: None (occurrence: None)
  Receive Date: 20050401
  Receipt Date: 20050317
  Transmission Date: 20051028
  Serious: Yes (Other)
  Sender: FDA-Public Use
  Company Number: PHBS2005CA03952

PATIENT
  Age: 50 Year
  Sex: Female
  Weight: 59 kg

DRUGS (4)
  1. CLOTRIMAZOLE [Concomitant]
     Route: 061
  2. CORTATE [Concomitant]
     Route: 061
  3. ERYTHROMYCIN STEARATE [Concomitant]
     Dosage: 250 MG, QID
     Dates: start: 20050221, end: 20050309
  4. ELIDEL [Suspect]
     Indication: ROSACEA
     Dosage: UNK, QD
     Route: 061
     Dates: start: 20050310, end: 20050311

REACTIONS (6)
  - APPLICATION SITE ERYTHEMA [None]
  - APPLICATION SITE OEDEMA [None]
  - APPLICATION SITE WARMTH [None]
  - DYSPNOEA [None]
  - FACE OEDEMA [None]
  - OROPHARYNGEAL SWELLING [None]
